FAERS Safety Report 8611989-9 (Version None)
Quarter: 2012Q3

REPORT INFORMATION
  Report Type: 
  Country: None (occurrence: None)
  Receive Date: 20120822
  Receipt Date: 20120813
  Transmission Date: 20120928
  Serious: Yes (Other)
  Sender: FDA-Public Use
  Company Number: US-GLAXOSMITHKLINE-A0899246A

PATIENT
  Age: 67 Year
  Sex: Male
  Weight: 115.5 kg

DRUGS (1)
  1. AVANDIA [Suspect]
     Indication: DIABETES MELLITUS
     Dosage: 8MG PER DAY
     Route: 048
     Dates: start: 20000101

REACTIONS (2)
  - HYPERTENSION [None]
  - CARDIAC FAILURE CONGESTIVE [None]
